FAERS Safety Report 9852386 (Version 1)
Quarter: 2014Q1

REPORT INFORMATION
  Report Type: Spontaneous
  Country: US (occurrence: None)
  Receive Date: 20140127
  Receipt Date: 20140127
  Transmission Date: 20141002
  Serious: Yes (Hospitalization)
  Sender: FDA-Public Use
  Company Number: QSC-2012-0314

PATIENT
  Age: 63 Year
  Sex: Male
  Weight: 113.4 kg

DRUGS (5)
  1. H.P. ACTHAR GEL [Suspect]
     Indication: NEPHROTIC SYNDROME
     Dosage: 80 UNITS, BIW
     Dates: start: 20120827, end: 20121018
  2. DIVOAN (VALSARTAN) [Concomitant]
  3. (BISOLICH (BISOPROLOL FUMARATE) [Concomitant]
  4. GLIMEPIRIDE (GLIMEPIRIDE) [Concomitant]
  5. WELLBUTRIN (BUPROPION HYDROCHLORIDE) [Concomitant]

REACTIONS (3)
  - Dyspnoea [None]
  - Hypertension [None]
  - Dyspnoea [None]
